FAERS Safety Report 13940725 (Version 3)
Quarter: 2017Q3

REPORT INFORMATION
  Report Type: Report from Study
  Country: JP (occurrence: JP)
  Receive Date: 20170906
  Receipt Date: 20170928
  Transmission Date: 20171127
  Serious: Yes (Hospitalization)
  Sender: FDA-Public Use
  Company Number: PHJP2017JP026871

PATIENT
  Age: 79 Year
  Sex: Male
  Weight: 65 kg

DRUGS (53)
  1. FOSPHENYTOIN [Concomitant]
     Active Substance: FOSPHENYTOIN\FOSPHENYTOIN SODIUM
     Indication: PROPHYLAXIS
     Dosage: 1125 MG, UNK
     Route: 042
     Dates: start: 20170828, end: 20170828
  2. BRIDION [Concomitant]
     Active Substance: SUGAMMADEX
     Indication: MUSCLE RELAXANT THERAPY
     Dosage: 200 MG, UNK
     Route: 042
     Dates: start: 20170828, end: 20170828
  3. SURGICEL [Concomitant]
     Active Substance: CELLULOSE, OXIDIZED
     Indication: HAEMOSTASIS
     Dosage: 1 DF, UNK
     Route: 042
     Dates: start: 20170828, end: 20170828
  4. NORMAL SALINE [Concomitant]
     Active Substance: SODIUM CHLORIDE
     Indication: VEHICLE SOLUTION USE
     Dosage: 200 ML, UNK
     Route: 042
     Dates: start: 20170828, end: 20170828
  5. NORMAL SALINE [Concomitant]
     Active Substance: SODIUM CHLORIDE
     Indication: IRRIGATION THERAPY
     Dosage: 200 ML, UNK
     Route: 042
     Dates: start: 20170828, end: 20170828
  6. NORMAL SALINE [Concomitant]
     Active Substance: SODIUM CHLORIDE
     Dosage: 1000 ML, UNK
     Route: 042
     Dates: start: 20170828, end: 20170828
  7. CARVEDILOL. [Concomitant]
     Active Substance: CARVEDILOL
     Indication: HYPERTENSION
     Dosage: 5 MG, BID
     Route: 048
     Dates: start: 20150409
  8. SPIRONOLACTONE. [Concomitant]
     Active Substance: SPIRONOLACTONE
     Indication: OEDEMA
     Dosage: 12.5 MG, QD
     Route: 048
     Dates: start: 20160108
  9. NICARDIPINE [Concomitant]
     Active Substance: NICARDIPINE
     Indication: BLOOD PRESSURE MANAGEMENT
     Dosage: 11 DF, UNK
     Route: 042
     Dates: start: 20170828
  10. CEFAZOLIN SODIUM. [Concomitant]
     Active Substance: CEFAZOLIN SODIUM
     Indication: INFECTION PROPHYLAXIS
     Dosage: 2 G, UNK
     Route: 042
     Dates: start: 20170828, end: 20170828
  11. SOLDEM 3A [Concomitant]
     Active Substance: CARBOHYDRATES\POTASSIUM CHLORIDE\SODIUM CHLORIDE\SODIUM LACTATE
     Indication: NUTRITIONAL SUPPLEMENTATION
     Dosage: 500 ML, UNK
     Route: 042
     Dates: start: 20170828, end: 20170828
  12. NORMAL SALINE [Concomitant]
     Active Substance: SODIUM CHLORIDE
     Dosage: 2000 ML, UNK
     Route: 042
     Dates: start: 20170828, end: 20170828
  13. SUPRANE [Concomitant]
     Active Substance: DESFLURANE
     Indication: ANAESTHESIA PROCEDURE
     Dosage: 170 ML, UNK
     Route: 042
     Dates: start: 20170828, end: 20170828
  14. ILARIS [Suspect]
     Active Substance: CANAKINUMAB
     Indication: CARDIOVASCULAR EVENT PROPHYLAXIS
     Dosage: 150 MG, UNK
     Route: 058
     Dates: start: 20111006, end: 20120105
  15. NIFEDIPINE. [Concomitant]
     Active Substance: NIFEDIPINE
     Indication: HYPERTENSION
     Dosage: 40 MG, QD
     Route: 048
     Dates: start: 20140926, end: 20150304
  16. SOLYUGEN F [Concomitant]
     Indication: ELECTROLYTE SUBSTITUTION THERAPY
     Dosage: 500 ML, UNK
     Route: 042
     Dates: start: 20170828, end: 20170828
  17. FOSPHENYTOIN [Concomitant]
     Active Substance: FOSPHENYTOIN\FOSPHENYTOIN SODIUM
     Dosage: 375 MG, UNK
     Route: 042
     Dates: start: 20170829
  18. DIPRIVAN [Concomitant]
     Active Substance: PROPOFOL
     Indication: GENERAL ANAESTHESIA
     Dosage: 200 MG, UNK
     Route: 042
     Dates: start: 20170828, end: 20170828
  19. NICORANDIL [Concomitant]
     Active Substance: NICORANDIL
     Indication: PROPHYLAXIS
     Dosage: 48 MG, UNK
     Route: 042
     Dates: start: 20170828, end: 20170829
  20. FENTANYL. [Concomitant]
     Active Substance: FENTANYL
     Indication: PAIN MANAGEMENT
     Dosage: 0.7 MG, UNK
     Route: 042
     Dates: start: 20170828, end: 20170828
  21. HEPAFLUSH [Concomitant]
     Active Substance: HEPARIN SODIUM
     Dosage: 10 ML, UNK
     Route: 042
     Dates: start: 20170829, end: 20170829
  22. IRRADIATED PLATELET CONCENTRATE, LEUKOCYTES R [Concomitant]
     Indication: FLUID REPLACEMENT
     Dosage: 10 DF, UNK
     Route: 042
     Dates: start: 20170828, end: 20170828
  23. BAYASPIRIN [Concomitant]
     Active Substance: ASPIRIN
     Indication: PROPHYLAXIS
     Dosage: 100 MG, QD
     Route: 048
     Dates: start: 20140814
  24. NIFEDIPINE. [Concomitant]
     Active Substance: NIFEDIPINE
     Dosage: 20 MG, QD
     Route: 048
     Dates: start: 20150305
  25. LAC-B [Concomitant]
     Active Substance: BIFIDOBACTERIUM SPP.
     Indication: CONSTIPATION
     Dosage: 1 G, TID
     Route: 048
     Dates: start: 20131003
  26. SOLYUGEN F [Concomitant]
     Dosage: 1000 ML, UNK
     Route: 042
     Dates: start: 20170829, end: 20170829
  27. ULTIVA [Concomitant]
     Active Substance: REMIFENTANIL HYDROCHLORIDE
     Indication: ANALGESIC THERAPY
     Dosage: 3.5 MG, UNK
     Route: 042
     Dates: start: 20170828, end: 20170828
  28. NEOSYNESIN [Concomitant]
     Active Substance: PHENYLEPHRINE HYDROCHLORIDE
     Indication: ANAESTHESIA PROCEDURE
     Dosage: 1 MG, UNK
     Route: 042
     Dates: start: 20170828, end: 20170828
  29. ARTCEREB [Concomitant]
     Indication: IRRIGATION THERAPY
     Dosage: 1000 ML, UNK
     Route: 042
     Dates: start: 20170828, end: 20170828
  30. ELIETEN [Concomitant]
     Active Substance: METOCLOPRAMIDE
     Indication: VOMITING
  31. NIZATIDINE. [Concomitant]
     Active Substance: NIZATIDINE
     Indication: PROPHYLAXIS
     Dosage: 150 MG, QD
     Route: 048
     Dates: start: 20150702
  32. SOLDEM 3A [Concomitant]
     Active Substance: CARBOHYDRATES\POTASSIUM CHLORIDE\SODIUM CHLORIDE\SODIUM LACTATE
     Dosage: 1000 ML, UNK
     Route: 042
     Dates: start: 20170829, end: 20170829
  33. BERIPLAST P [Concomitant]
     Indication: TISSUE SEALING
     Dosage: 1 DF, UNK
     Route: 065
     Dates: start: 20170828, end: 20170828
  34. ROCURONIUM BROMIDE. [Concomitant]
     Active Substance: ROCURONIUM BROMIDE
     Indication: HYPOTONIA
     Dosage: 150 MG, UNK
     Route: 042
     Dates: start: 20170828, end: 20170828
  35. BICARBON [Concomitant]
     Active Substance: SODIUM BICARBONATE
     Indication: ELECTROLYTE SUBSTITUTION THERAPY
     Dosage: 1500 ML, UNK
     Route: 042
     Dates: start: 20170828, end: 20170828
  36. ACELIO [Concomitant]
     Active Substance: ACETAMINOPHEN
     Indication: PAIN MANAGEMENT
     Dosage: 1000 MG, UNK
     Route: 042
     Dates: start: 20170828, end: 20170828
  37. SOLULACT [Concomitant]
     Indication: ELECTROLYTE SUBSTITUTION THERAPY
     Dosage: 500 ML, UNK
     Route: 042
     Dates: start: 20170828, end: 20170828
  38. CEFAZOLIN SODIUM. [Concomitant]
     Active Substance: CEFAZOLIN SODIUM
     Dosage: 3 G, UNK
     Route: 042
     Dates: start: 20170829, end: 20170829
  39. OMEPRAZOLE. [Concomitant]
     Active Substance: OMEPRAZOLE
     Dosage: 40 MG, UNK
     Route: 042
     Dates: start: 20170829
  40. XYLOCAINE [Concomitant]
     Active Substance: LIDOCAINE HYDROCHLORIDE
     Indication: ARRHYTHMIA PROPHYLAXIS
     Dosage: 5 ML, UNK
     Route: 042
     Dates: start: 20170828, end: 20170828
  41. ELIETEN [Concomitant]
     Active Substance: METOCLOPRAMIDE
     Indication: NAUSEA
     Dosage: 10 MG, UNK
     Route: 042
     Dates: start: 20170828, end: 20170828
  42. CRESTOR [Concomitant]
     Active Substance: ROSUVASTATIN CALCIUM
     Indication: DYSLIPIDAEMIA
     Dosage: 2.5 MG, QD
     Route: 048
     Dates: start: 20110602
  43. IRRADIATED WASHED RED CELLS-LEUKOCYTES REDUCE [Concomitant]
     Indication: FLUID REPLACEMENT
     Dosage: 2 DF (DERIVED FROM 400 ML, 2 PACKS), UNK
     Route: 042
     Dates: start: 20170828, end: 20170828
  44. HEPAFLUSH [Concomitant]
     Active Substance: HEPARIN SODIUM
     Indication: PROPHYLAXIS
     Dosage: 20 ML, UNK
     Route: 042
     Dates: start: 20170828, end: 20170828
  45. ILARIS [Suspect]
     Active Substance: CANAKINUMAB
     Dosage: UNK
     Route: 058
     Dates: start: 20121004
  46. BENZBROMARONE [Concomitant]
     Active Substance: BENZBROMARONE
     Indication: GOUT
     Dosage: 50 MG, QD
     Route: 048
     Dates: start: 20150703
  47. DOXAZOSIN [Concomitant]
     Active Substance: DOXAZOSIN\DOXAZOSIN MESYLATE
     Indication: HYPERTENSION
     Dosage: 1 MG, QD
     Dates: start: 20150305
  48. OMEPRAZOLE. [Concomitant]
     Active Substance: OMEPRAZOLE
     Indication: GASTRITIS PROPHYLAXIS
     Dosage: 20 MG, UNK
     Route: 042
     Dates: start: 20170828, end: 20170828
  49. MANNITOL. [Concomitant]
     Active Substance: MANNITOL
     Indication: BRAIN OEDEMA
     Dosage: 200 ML, UNK
     Route: 042
     Dates: start: 20170828, end: 20170828
  50. TRANEXAMIC ACID. [Concomitant]
     Active Substance: TRANEXAMIC ACID
     Indication: HAEMOSTASIS
     Dosage: 2000 MG, UNK
     Route: 042
     Dates: start: 20170828, end: 20170828
  51. HEPARIN [Concomitant]
     Active Substance: HEPARIN SODIUM
     Indication: PROPHYLAXIS
     Dosage: 1 ML, UNK
     Route: 042
     Dates: start: 20170828, end: 20170828
  52. NORMAL SALINE [Concomitant]
     Active Substance: SODIUM CHLORIDE
     Dosage: 150 ML, UNK
     Route: 042
     Dates: start: 20170829, end: 20170829
  53. NORMAL SALINE [Concomitant]
     Active Substance: SODIUM CHLORIDE
     Dosage: 150 ML, UNK
     Route: 042
     Dates: start: 20170829, end: 20170829

REACTIONS (1)
  - Cerebral haemorrhage [Recovered/Resolved]

NARRATIVE: CASE EVENT DATE: 20170828
